FAERS Safety Report 5146762-X (Version None)
Quarter: 2006Q4

REPORT INFORMATION
  Report Type: 
  Country: None (occurrence: None)
  Receive Date: 20061107
  Receipt Date: 20061107
  Transmission Date: 20070319
  Serious: Yes (Other)
  Sender: FDA-Public Use
  Company Number: None

PATIENT
  Age: 30 Year
  Sex: Female
  Weight: 54.4316 kg

DRUGS (1)
  1. CIPROFLOXACIN [Suspect]
     Indication: GASTROINTESTINAL DISORDER
     Dosage: 500 MG BID PO
     Route: 048
     Dates: start: 20060401, end: 20060430

REACTIONS (22)
  - ANXIETY [None]
  - BALANCE DISORDER [None]
  - BURNING SENSATION [None]
  - DELIRIUM [None]
  - DEPERSONALISATION [None]
  - DRY SKIN [None]
  - DYSPHONIA [None]
  - EYE MOVEMENT DISORDER [None]
  - HEADACHE [None]
  - HYPERHIDROSIS [None]
  - IMPAIRED HEALING [None]
  - INCONTINENCE [None]
  - LOSS OF LIBIDO [None]
  - MUSCLE ATROPHY [None]
  - MUSCULAR WEAKNESS [None]
  - PARAESTHESIA ORAL [None]
  - PSYCHOTIC DISORDER [None]
  - SKIN ATROPHY [None]
  - SKIN WRINKLING [None]
  - TACHYCARDIA [None]
  - TENDON PAIN [None]
  - VISUAL DISTURBANCE [None]
